FAERS Safety Report 8622909-5 (Version None)
Quarter: 2012Q3

REPORT INFORMATION
  Report Type: 
  Country: None (occurrence: None)
  Receive Date: 20120827
  Receipt Date: 20120820
  Transmission Date: 20120928
  Serious: Yes (Death, Hospitalization, Other)
  Sender: FDA-Public Use
  Company Number: PHHY2012TW071069

PATIENT
  Sex: Female

DRUGS (2)
  1. TASIGNA [Suspect]
     Indication: CHRONIC MYELOID LEUKAEMIA
     Dosage: 800 MG/DAY
     Route: 048
     Dates: start: 20111015, end: 20120717
  2. DASATINIB [Concomitant]
     Dosage: 100 MG, DAILY
     Dates: start: 20120731, end: 20120803

REACTIONS (21)
  - HAEMOGLOBIN DECREASED [None]
  - VOMITING [None]
  - SUBARACHNOID HAEMORRHAGE [None]
  - SUBDURAL HAEMATOMA [None]
  - SEPSIS [None]
  - DEATH [None]
  - PAIN IN EXTREMITY [None]
  - DEAFNESS BILATERAL [None]
  - DEPRESSED LEVEL OF CONSCIOUSNESS [None]
  - FEBRILE NEUTROPENIA [None]
  - PNEUMONIA [None]
  - STOMATITIS [None]
  - BRAIN OEDEMA [None]
  - INTRACRANIAL PRESSURE INCREASED [None]
  - THROMBOCYTOPENIA [None]
  - HEADACHE [None]
  - NAUSEA [None]
  - HAEMORRHAGE INTRACRANIAL [None]
  - NEUTROPENIA [None]
  - HYDROCEPHALUS [None]
  - HERPES VIRUS INFECTION [None]
